FAERS Safety Report 25831181 (Version 1)
Quarter: 2025Q3

REPORT INFORMATION
  Report Type: Spontaneous
  Country: ZA (occurrence: ZA)
  Receive Date: 20250922
  Receipt Date: 20250922
  Transmission Date: 20251020
  Serious: Yes (Hospitalization, Other)
  Sender: MACLEODS
  Company Number: ZA-MACLEODS PHARMA-MAC2017004846

PATIENT

DRUGS (3)
  1. NEVIRAPINE [Suspect]
     Active Substance: NEVIRAPINE
     Indication: HIV infection
     Dosage: 400 MG, QD FOR MORE THAN 4 YEARS
     Route: 065
  2. TENOFOVIR [Concomitant]
     Active Substance: TENOFOVIR
     Dosage: 300 MG, QD FOR MORE THAN 4 YEARS
     Route: 065
  3. LAMIVUDINE [Concomitant]
     Active Substance: LAMIVUDINE
     Dosage: 300 MG, QD FOR MORE THAN 4 YEARS
     Route: 065

REACTIONS (4)
  - Epidermal necrosis [Recovered/Resolved]
  - Skin hyperpigmentation [Recovering/Resolving]
  - Stevens-Johnson syndrome [Recovered/Resolved]
  - Extra dose administered [Unknown]
